FAERS Safety Report 15813423 (Version 1)
Quarter: 2019Q1

REPORT INFORMATION
  Report Type: Spontaneous
  Country: DK (occurrence: DK)
  Receive Date: 20190111
  Receipt Date: 20190111
  Transmission Date: 20190417
  Serious: Yes (Disabling)
  Sender: FDA-Public Use
  Company Number: DK-TEVA-2019-DK-997451

PATIENT
  Age: 57 Year
  Sex: Male

DRUGS (1)
  1. PREDNISOLONE. [Suspect]
     Active Substance: PREDNISOLONE
     Indication: PNEUMONITIS
     Dosage: DOSAGE: CHANGING. STRENGTH: CHANGING.
     Route: 048
     Dates: start: 20150707

REACTIONS (4)
  - Spinal compression fracture [Not Recovered/Not Resolved]
  - Pain [Not Recovered/Not Resolved]
  - Osteoporosis [Not Recovered/Not Resolved]
  - Bone decalcification [Recovering/Resolving]

NARRATIVE: CASE EVENT DATE: 2015
